FAERS Safety Report 7889907-0 (Version None)
Quarter: 2011Q4

REPORT INFORMATION
  Report Type: 
  Country: None (occurrence: None)
  Receive Date: 20111103
  Receipt Date: 20111024
  Transmission Date: 20120403
  Serious: Yes (Hospitalization)
  Sender: FDA-Public Use
  Company Number: US-ELI_LILLY_AND_COMPANY-US201110007289

PATIENT

DRUGS (1)
  1. HUMALOG [Suspect]

REACTIONS (1)
  - HOSPITALISATION [None]
